FAERS Safety Report 25071953 (Version 1)
Quarter: 2025Q1

REPORT INFORMATION
  Report Type: Spontaneous
  Country: US (occurrence: US)
  Receive Date: 20250313
  Receipt Date: 20250313
  Transmission Date: 20250409
  Serious: Yes (Other)
  Sender: ALEXION PHARMACEUTICALS
  Company Number: US-AstraZeneca-CH-00822838A

PATIENT

DRUGS (1)
  1. CALQUENCE [Suspect]
     Active Substance: ACALABRUTINIB
     Route: 065

REACTIONS (7)
  - Sudden hearing loss [Unknown]
  - Cerebral haemorrhage [Unknown]
  - Ear haemorrhage [Unknown]
  - Ear tube insertion [Unknown]
  - Ear tube removal [Unknown]
  - Hypoacusis [Unknown]
  - Presbyopia [Unknown]
